FAERS Safety Report 19073422 (Version 1)
Quarter: 2021Q1

REPORT INFORMATION
  Report Type: Spontaneous
  Country: US (occurrence: US)
  Receive Date: 20210330
  Receipt Date: 20210330
  Transmission Date: 20210420
  Serious: No
  Sender: FDA-Public Use
  Company Number: US-TAKEDA-US201940538

PATIENT
  Sex: Female

DRUGS (4)
  1. GATTEX [Suspect]
     Active Substance: TEDUGLUTIDE\WATER
     Indication: SHORT-BOWEL SYNDROME
     Dosage: 2.69 MILLIGRAM, 1X/DAY:QD
     Route: 058
     Dates: start: 20180618
  2. GATTEX [Suspect]
     Active Substance: TEDUGLUTIDE\WATER
     Indication: SHORT-BOWEL SYNDROME
     Dosage: 2.69 MILLIGRAM, 1X/DAY:QD
     Route: 058
     Dates: start: 20180618
  3. GATTEX [Suspect]
     Active Substance: TEDUGLUTIDE\WATER
     Indication: SHORT-BOWEL SYNDROME
     Dosage: 2.69 MILLIGRAM, 1X/DAY:QD
     Route: 058
     Dates: start: 20180618
  4. GATTEX [Suspect]
     Active Substance: TEDUGLUTIDE\WATER
     Indication: SHORT-BOWEL SYNDROME
     Dosage: 2.69 MILLIGRAM, 1X/DAY:QD
     Route: 058
     Dates: start: 20180618

REACTIONS (3)
  - Insurance issue [Unknown]
  - Inappropriate schedule of product administration [Unknown]
  - No adverse event [Unknown]
